FAERS Safety Report 21839236 (Version 1)
Quarter: 2023Q1

REPORT INFORMATION
  Report Type: Report from Study
  Country: DE (occurrence: DE)
  Receive Date: 20230109
  Receipt Date: 20230109
  Transmission Date: 20230418
  Serious: Yes (Life-Threatening, Hospitalization)
  Sender: FDA-Public Use
  Company Number: DE-JNJFOC-20230101044

PATIENT
  Age: 51 Year
  Sex: Male
  Weight: 74 kg

DRUGS (4)
  1. TECLISTAMAB [Suspect]
     Active Substance: TECLISTAMAB
     Indication: Plasma cell myeloma
     Dosage: LAST DOSE 111,75MG, 0-1-0
     Route: 058
     Dates: start: 20221222, end: 20221227
  2. ACYCLOVIR [Concomitant]
     Active Substance: ACYCLOVIR
     Indication: Prophylaxis
     Route: 048
  3. PANTOPRAZOLE SODIUM [Concomitant]
     Active Substance: PANTOPRAZOLE SODIUM
     Indication: Gastrointestinal disorder therapy
     Route: 048
  4. DETRUSITOL [Concomitant]
     Active Substance: TOLTERODINE TARTRATE
     Indication: Vitamin D decreased
     Dosage: 20.000IE
     Route: 048
     Dates: start: 20221228

REACTIONS (1)
  - Cytokine release syndrome [Recovering/Resolving]

NARRATIVE: CASE EVENT DATE: 20221228
